FAERS Safety Report 25983932 (Version 2)
Quarter: 2025Q4

REPORT INFORMATION
  Report Type: Spontaneous
  Country: JP (occurrence: JP)
  Receive Date: 20251031
  Receipt Date: 20251121
  Transmission Date: 20260117
  Serious: Yes (Other)
  Sender: AMGEN
  Company Number: JP-AMGEN-JPNSP2025212863

PATIENT
  Sex: Male

DRUGS (3)
  1. BLINCYTO [Suspect]
     Active Substance: BLINATUMOMAB
     Indication: Product used for unknown indication
     Dosage: UNK, INJECTION
     Route: 040
     Dates: start: 20251023
  2. PONATINIB [Concomitant]
     Active Substance: PONATINIB
  3. INOTUZUMAB OZOGAMICIN [Concomitant]
     Active Substance: INOTUZUMAB OZOGAMICIN

REACTIONS (2)
  - Disease recurrence [Unknown]
  - Off label use [Unknown]

NARRATIVE: CASE EVENT DATE: 20251023
